FAERS Safety Report 16331364 (Version 1)
Quarter: 2019Q2

REPORT INFORMATION
  Report Type: Spontaneous
  Country: US (occurrence: US)
  Receive Date: 20190520
  Receipt Date: 20190520
  Transmission Date: 20190711
  Serious: Yes (Other)
  Sender: FDA-Public Use
  Company Number: US-MICRO LABS LIMITED-ML2019-01229

PATIENT
  Age: 59 Year
  Sex: Male

DRUGS (3)
  1. TRANEXAMIC ACID. [Suspect]
     Active Substance: TRANEXAMIC ACID
     Indication: PROCOAGULANT THERAPY
     Dosage: TWENTY MINUTES FOLLOWING THE INITIATION OF THE PROCEDURE, IV BOLUS DOSE OF TRANEXAMIC ACID 500MG WAS
     Route: 040
  2. ASPIRIN. [Concomitant]
     Active Substance: ASPIRIN
  3. PRASUGREL. [Concomitant]
     Active Substance: PRASUGREL

REACTIONS (3)
  - Vascular stent thrombosis [Unknown]
  - Acute myocardial infarction [Unknown]
  - Arterial occlusive disease [Unknown]
